FAERS Safety Report 5483631-X (Version None)
Quarter: 2007Q4

REPORT INFORMATION
  Report Type: 
  Country: None (occurrence: None)
  Receive Date: 20071010
  Receipt Date: 20071002
  Transmission Date: 20080405
  Serious: Yes (Other)
  Sender: FDA-Public Use
  Company Number: 2007332386

PATIENT
  Sex: Female

DRUGS (1)
  1. BENADRYL [Suspect]
     Indication: HYPERSENSITIVITY
     Dosage: 2 KAPSEALS 4-6 HOURS, ORAL
     Route: 048
     Dates: start: 20070921, end: 20070926

REACTIONS (2)
  - PHARYNGITIS STREPTOCOCCAL [None]
  - THROAT TIGHTNESS [None]
